FAERS Safety Report 13451548 (Version 2)
Quarter: 2017Q3

REPORT INFORMATION
  Report Type: Spontaneous
  Country: DE (occurrence: DE)
  Receive Date: 20170418
  Receipt Date: 20170804
  Transmission Date: 20171127
  Serious: Yes (Hospitalization)
  Sender: FDA-Public Use
  Company Number: DE-AMGEN-DEUSP2017058105

PATIENT
  Age: 68 Year
  Sex: Female

DRUGS (17)
  1. ATORVASTATIN [Concomitant]
     Active Substance: ATORVASTATIN
     Dosage: 1 DF, DAILY, SCHEMA: 0-0-1
  2. BISOPROLOL [Concomitant]
     Active Substance: BISOPROLOL
     Dosage: 1 DF, DAILY, SCHEMA: 1-0-0
  3. BUDECORT [Concomitant]
     Active Substance: BUDESONIDE
     Dosage: 2 DF, DAILY, SCHEMA: 1-0-1
  4. CORVATON [Concomitant]
     Active Substance: MOLSIDOMINE
     Dosage: 3 DF, DAILY, SCHEMA: 1-1-1
  5. RAMIPRIL. [Concomitant]
     Active Substance: RAMIPRIL
     Dosage: 2 DF, DAILY, SCHEMA: 1-0-1
  6. VIGANTOLETTEN [Concomitant]
     Active Substance: CHOLECALCIFEROL
     Dosage: SCHEMA: 1-0-0
  7. PREDNISOLON [Concomitant]
     Active Substance: PREDNISOLONE
     Dosage: 2 DF, DAILY, SCHEMA: 2-0-0
  8. PLEON [Concomitant]
     Dosage: 2 DF, TWICE DAILY, SCHEMA: 2-0-2
  9. NOVALGIN [Concomitant]
     Active Substance: METAMIZOLE SODIUM
     Dosage: SCHEMA: 40-40-0
  10. ENBREL [Suspect]
     Active Substance: ETANERCEPT
     Indication: RHEUMATOID ARTHRITIS
     Dosage: 50 MG, QWK
     Route: 065
     Dates: start: 20160604
  11. LANTUS [Concomitant]
     Active Substance: INSULIN GLARGINE
     Dosage: ACCORDING TO THE PLAN
  12. PANTOZOL [Concomitant]
     Active Substance: PANTOPRAZOLE SODIUM
     Dosage: 1 DF, DAILY, SCHEMA: 1-0-0
  13. ADENURIC [Concomitant]
     Active Substance: FEBUXOSTAT
     Dosage: 1 DF, DAILY, SCHEMA: 1-0-0
  14. TORASEMID [Concomitant]
     Active Substance: TORSEMIDE
     Dosage: 1.5 DF, SCHEMA: 1 1/2-0-0
  15. ASPIRIN. [Concomitant]
     Active Substance: ASPIRIN
     Dosage: 1 DF, DAILY, SCHEMA: 1-0-0
  16. HUMALOG [Concomitant]
     Active Substance: INSULIN LISPRO
     Dosage: ACCORDING TO THE PLAN
  17. FERROSANOL [Concomitant]
     Active Substance: FERROUS GLUCONATE
     Dosage: 1 DF, DAILY, SCHEMA: 1-0-0

REACTIONS (2)
  - Spinal disorder [Not Recovered/Not Resolved]
  - Impaired healing [Unknown]
